FAERS Safety Report 18277509 (Version 1)
Quarter: 2020Q3

REPORT INFORMATION
  Report Type: Spontaneous
  Country: US (occurrence: US)
  Receive Date: 20200917
  Receipt Date: 20200917
  Transmission Date: 20201103
  Serious: No
  Sender: FDA-Public Use
  Company Number: US-BIODELIVERY SCIENCES INTERNATIONAL-2020BDSI0521

PATIENT
  Age: 73 Year
  Sex: Female
  Weight: 63.11 kg

DRUGS (4)
  1. BUPRENORPHINE. [Suspect]
     Active Substance: BUPRENORPHINE
     Route: 002
     Dates: start: 202008, end: 202008
  2. BUPRENORPHINE. [Suspect]
     Active Substance: BUPRENORPHINE
     Indication: PAIN
     Route: 002
     Dates: start: 202007, end: 202008
  3. DIPHENHYDRAMINE HYDROCHLORIDE. [Suspect]
     Active Substance: DIPHENHYDRAMINE HYDROCHLORIDE
     Indication: LIP SWELLING
     Dosage: UNKNOWN; UNKNOWN
     Route: 048
     Dates: start: 202008, end: 202008
  4. NO DRUG NAME [Concomitant]
     Active Substance: UNSPECIFIED INGREDIENT
     Indication: HYPERTENSION
     Dosage: UNKNOWN; UNKNOWN
     Route: 065

REACTIONS (9)
  - Lip swelling [Recovering/Resolving]
  - Lip pain [Recovering/Resolving]
  - Lip blister [Recovering/Resolving]
  - Mouth ulceration [Recovering/Resolving]
  - Lip haemorrhage [Recovering/Resolving]
  - Tongue ulceration [Recovering/Resolving]
  - Oral pustule [Recovering/Resolving]
  - Lip exfoliation [Recovering/Resolving]
  - Cheilitis [Recovering/Resolving]

NARRATIVE: CASE EVENT DATE: 202008
